FAERS Safety Report 23433874 (Version 1)
Quarter: 2024Q1

REPORT INFORMATION
  Report Type: Spontaneous
  Country: US (occurrence: None)
  Receive Date: 20240123
  Receipt Date: 20240123
  Transmission Date: 20240409
  Serious: No
  Sender: FDA-Public Use
  Company Number: None

PATIENT
  Age: 33 Year
  Sex: Female
  Weight: 51.75 kg

DRUGS (1)
  1. MAVENCLAD [Suspect]
     Active Substance: CLADRIBINE
     Indication: Multiple sclerosis
     Dosage: OTHER FREQUENCY : DAILY FOR 5 DAYS;?
     Route: 048
     Dates: start: 20240115, end: 20240119

REACTIONS (1)
  - Tachycardia [None]

NARRATIVE: CASE EVENT DATE: 20240121
